FAERS Safety Report 23704241 (Version 1)
Quarter: 2024Q2

REPORT INFORMATION
  Report Type: Report from Study
  Country: US (occurrence: US)
  Receive Date: 20240404
  Receipt Date: 20240404
  Transmission Date: 20240716
  Serious: Yes (Other)
  Sender: FDA-Public Use
  Company Number: US-ABBVIE-5704171

PATIENT
  Sex: Female

DRUGS (1)
  1. HUMIRA [Suspect]
     Active Substance: ADALIMUMAB
     Indication: Psoriasis
     Dosage: 40 MG STRENGTH?CITRATE FREE
     Route: 058
     Dates: start: 20010816

REACTIONS (2)
  - Benign ear neoplasm [Recovered/Resolved]
  - Psoriasis [Recovered/Resolved]
